FAERS Safety Report 21975214 (Version 1)
Quarter: 2023Q1

REPORT INFORMATION
  Report Type: Report from Study
  Country: CN (occurrence: CN)
  Receive Date: 20230209
  Receipt Date: 20230209
  Transmission Date: 20230417
  Serious: Yes (Other)
  Sender: FDA-Public Use
  Company Number: CN-ALS-000881

PATIENT
  Age: 56 Year
  Sex: Female

DRUGS (1)
  1. METFORMIN [Suspect]
     Active Substance: METFORMIN HYDROCHLORIDE
     Indication: Type 2 diabetes mellitus
     Route: 065

REACTIONS (10)
  - Alanine aminotransferase increased [Unknown]
  - Blood cholesterol decreased [Unknown]
  - Low density lipoprotein increased [Unknown]
  - Body mass index increased [Unknown]
  - High density lipoprotein increased [Unknown]
  - Aspartate aminotransferase increased [Unknown]
  - Bile output decreased [Unknown]
  - Apolipoprotein B increased [Unknown]
  - Insulin resistance [Unknown]
  - Drug ineffective [Unknown]
